FAERS Safety Report 25581637 (Version 1)
Quarter: 2025Q3

REPORT INFORMATION
  Report Type: Spontaneous
  Country: US (occurrence: US)
  Receive Date: 20250719
  Receipt Date: 20250719
  Transmission Date: 20251020
  Serious: Yes (Life-Threatening, Hospitalization, Other)
  Sender: RANBAXY
  Company Number: US-SUN PHARMACEUTICAL INDUSTRIES LTD-2025R1-517159

PATIENT
  Age: 45 Year
  Sex: Male

DRUGS (1)
  1. BACLOFEN [Suspect]
     Active Substance: BACLOFEN
     Indication: Muscle spasticity
     Route: 037

REACTIONS (5)
  - Cardiac arrest [Unknown]
  - Overdose [Unknown]
  - Respiratory failure [Unknown]
  - Mental status changes [Unknown]
  - Toxicity to various agents [Unknown]
